FAERS Safety Report 6223713-8 (Version None)
Quarter: 2009Q2

REPORT INFORMATION
  Report Type: 
  Country: None (occurrence: None)
  Receive Date: 20090611
  Receipt Date: 20090306
  Transmission Date: 20091009
  Serious: Yes (Other)
  Sender: FDA-Public Use
  Company Number: US-ABBOTT-08P-163-0492387-00

PATIENT
  Sex: Female
  Weight: 86.26 kg

DRUGS (7)
  1. HUMIRA [Suspect]
     Indication: ANKYLOSING SPONDYLITIS
     Dates: start: 20060101, end: 20081001
  2. HUMIRA [Suspect]
     Dates: start: 20081211
  3. VICODIN [Concomitant]
     Indication: PAIN
     Dosage: 5/500
  4. REGLAN [Concomitant]
     Indication: CHOLELITHIASIS
  5. XANAX [Concomitant]
     Indication: ANXIETY
  6. ELAVIL [Concomitant]
     Indication: DEPRESSION
  7. PROTONIX [Concomitant]
     Indication: GALLBLADDER DISORDER

REACTIONS (2)
  - JOINT SWELLING [None]
  - MALIGNANT MELANOMA [None]
